FAERS Safety Report 6499645-7 (Version None)
Quarter: 2009Q4

REPORT INFORMATION
  Report Type: 
  Country: None (occurrence: None)
  Receive Date: 20091209
  Receipt Date: 20080729
  Transmission Date: 20100525
  Serious: No
  Sender: FDA-Public Use
  Company Number: M2008-014C

PATIENT
  Age: 22 Year
  Sex: Male

DRUGS (1)
  1. PMG 3 GRASS MIX M2008-014C-1 STD NGLY 1-10K V/V HOLLIST-STIER [Suspect]
     Indication: ALLERGENIC DESENSITISATION PROCEDURE
     Dosage: 0.1 ML INJECTION 2ND SHOT

REACTIONS (1)
  - URTICARIA [None]
